FAERS Safety Report 15277839 (Version 1)
Quarter: 2018Q3

REPORT INFORMATION
  Report Type: Spontaneous
  Country: GB (occurrence: GB)
  Receive Date: 20180814
  Receipt Date: 20180814
  Transmission Date: 20181010
  Serious: Yes (Other)
  Sender: FDA-Public Use
  Company Number: GB-MYLANLABS-2018M1058234

PATIENT
  Sex: Female

DRUGS (4)
  1. DEPAKOTE [Concomitant]
     Active Substance: DIVALPROEX SODIUM
     Indication: PRODUCT USED FOR UNKNOWN INDICATION
     Dosage: UNK
     Route: 048
  2. CLOZARIL [Suspect]
     Active Substance: CLOZAPINE
     Indication: SCHIZOPHRENIA
     Dosage: 50 MG, AM
     Route: 048
     Dates: start: 20180516
  3. HALOPERIDOL DECANOATE. [Concomitant]
     Active Substance: HALOPERIDOL DECANOATE
     Indication: PRODUCT USED FOR UNKNOWN INDICATION
     Dosage: UNK
     Route: 030
     Dates: end: 20180515
  4. CLOZARIL [Suspect]
     Active Substance: CLOZAPINE
     Dosage: 400 MG, PM
     Route: 048
     Dates: start: 20180516

REACTIONS (14)
  - Heart rate increased [Unknown]
  - Antipsychotic drug level decreased [Not Recovered/Not Resolved]
  - Body temperature increased [Unknown]
  - Blood test abnormal [Unknown]
  - Blood calcium decreased [Unknown]
  - Sedation complication [Recovered/Resolved]
  - Blood creatine phosphokinase abnormal [Unknown]
  - Full blood count abnormal [Unknown]
  - Salivary hypersecretion [Recovered/Resolved]
  - Electrocardiogram abnormal [Unknown]
  - Seizure [Unknown]
  - Refusal of treatment by patient [Unknown]
  - Lethargy [Unknown]
  - Nausea [Unknown]

NARRATIVE: CASE EVENT DATE: 2018
